FAERS Safety Report 23932429 (Version 2)
Quarter: 2024Q2

REPORT INFORMATION
  Report Type: Spontaneous
  Country: JP (occurrence: JP)
  Receive Date: 20240603
  Receipt Date: 20240610
  Transmission Date: 20240716
  Serious: Yes (Hospitalization)
  Sender: FDA-Public Use
  Company Number: JP-BAYER-2024A078375

PATIENT
  Age: 33 Year
  Sex: Female

DRUGS (1)
  1. YAZ [Suspect]
     Active Substance: DROSPIRENONE\ETHINYL ESTRADIOL
     Indication: Dysmenorrhoea
     Dosage: PROBABLY AFTER DINNER
     Route: 048
     Dates: start: 20240511

REACTIONS (2)
  - Mental disorder [Not Recovered/Not Resolved]
  - Product dose omission in error [None]

NARRATIVE: CASE EVENT DATE: 20240526
